FAERS Safety Report 7752534-X (Version None)
Quarter: 2011Q3

REPORT INFORMATION
  Report Type: 
  Country: None (occurrence: None)
  Receive Date: 20110915
  Receipt Date: 20110905
  Transmission Date: 20111222
  Serious: Yes (Other)
  Sender: FDA-Public Use
  Company Number: JO-MPIJNJ-2011-04147

PATIENT

DRUGS (2)
  1. VELCADE [Suspect]
     Indication: AMYLOIDOSIS
     Dosage: 2 MG/M2, UNK
     Route: 065
  2. VELCADE [Suspect]
     Dosage: 1.3 MG/M2, 1/WEEK
     Route: 065

REACTIONS (4)
  - HYPOAESTHESIA [None]
  - OFF LABEL USE [None]
  - MUSCULAR WEAKNESS [None]
  - VOCAL CORD PARALYSIS [None]
